FAERS Safety Report 19234891 (Version 1)
Quarter: 2021Q2

REPORT INFORMATION
  Report Type: Spontaneous
  Country: US (occurrence: US)
  Receive Date: 20210509
  Receipt Date: 20210509
  Transmission Date: 20210717
  Serious: No
  Sender: FDA-Public Use
  Company Number: US-SA-2021SA152119

PATIENT
  Sex: Male

DRUGS (6)
  1. ALLEGRA [Concomitant]
     Active Substance: FEXOFENADINE HYDROCHLORIDE
  2. SINGULAIR [Concomitant]
     Active Substance: MONTELUKAST SODIUM
  3. MOTRIN [Concomitant]
     Active Substance: IBUPROFEN
  4. PROAIR HFA [Concomitant]
     Active Substance: ALBUTEROL SULFATE
  5. DUPIXENT [Suspect]
     Active Substance: DUPILUMAB
     Indication: ASTHMA
     Dosage: UNK
     Route: 058
  6. ADVAIR HFA [Concomitant]
     Active Substance: FLUTICASONE PROPIONATE\SALMETEROL XINAFOATE

REACTIONS (2)
  - Fatigue [Unknown]
  - Hypersomnia [Unknown]
